FAERS Safety Report 4457106-0 (Version None)
Quarter: 2004Q3

REPORT INFORMATION
  Report Type: 
  Country: None (occurrence: None)
  Receive Date: 20040923
  Receipt Date: 20040914
  Transmission Date: 20050211
  Serious: Yes (Hospitalization, Other)
  Sender: FDA-Public Use
  Company Number: FR-ABBOTT-04P-056-0273259-00

PATIENT
  Age: 81 Year
  Sex: Male

DRUGS (14)
  1. NAXY TABLETS [Suspect]
     Indication: BRONCHITIS
     Route: 048
     Dates: start: 20040206, end: 20040214
  2. BETAMETHASONE [Suspect]
     Indication: DRUG USE FOR UNKNOWN INDICATION
     Route: 048
  3. LASIX [Suspect]
     Indication: MYOCARDIAL ISCHAEMIA
     Route: 048
     Dates: end: 20040224
  4. ALLOPURINOL [Suspect]
     Indication: DRUG USE FOR UNKNOWN INDICATION
     Route: 048
     Dates: start: 20031201, end: 20040224
  5. PULMICORT [Suspect]
     Indication: BRONCHITIS CHRONIC
     Route: 055
     Dates: start: 20040129, end: 20040216
  6. MUCOMYST [Suspect]
     Indication: BRONCHITIS CHRONIC
     Route: 048
     Dates: start: 20040129, end: 20040216
  7. PNEUMOREL [Suspect]
     Indication: BRONCHITIS
     Route: 048
     Dates: start: 20040206, end: 20040220
  8. DUOVENT [Concomitant]
     Indication: DRUG USE FOR UNKNOWN INDICATION
     Route: 055
     Dates: end: 20040224
  9. ZOCOR [Concomitant]
     Indication: DRUG USE FOR UNKNOWN INDICATION
     Route: 048
     Dates: end: 20040224
  10. CARBIMAZOLE [Concomitant]
     Indication: DRUG USE FOR UNKNOWN INDICATION
     Route: 048
  11. DILTIAZEM HYDROCHLORIDE [Concomitant]
     Indication: DRUG USE FOR UNKNOWN INDICATION
     Route: 048
  12. NITROGLYCERIN [Concomitant]
     Indication: DRUG USE FOR UNKNOWN INDICATION
     Route: 062
  13. LEVOTHYROXINE SODIUM [Concomitant]
     Indication: DRUG USE FOR UNKNOWN INDICATION
     Route: 048
  14. ACETYLSALICYLATE LYSINE [Concomitant]
     Indication: DRUG USE FOR UNKNOWN INDICATION
     Route: 048

REACTIONS (10)
  - BLOOD ALKALINE PHOSPHATASE INCREASED [None]
  - BRONCHITIS [None]
  - DERMATITIS EXFOLIATIVE [None]
  - DISEASE RECURRENCE [None]
  - EOSINOPHIL COUNT INCREASED [None]
  - EYE DISORDER [None]
  - NAIL DISORDER [None]
  - ORAL MUCOSAL DISORDER [None]
  - RASH PRURITIC [None]
  - RENAL FAILURE [None]
